FAERS Safety Report 11801350 (Version 1)
Quarter: 2015Q4

REPORT INFORMATION
  Report Type: Report from Study
  Country: BR (occurrence: BR)
  Receive Date: 20151204
  Receipt Date: 20151204
  Transmission Date: 20160305
  Serious: Yes (Death)
  Sender: FDA-Public Use
  Company Number: PHHY2015BR158207

PATIENT
  Sex: Female
  Weight: 45 kg

DRUGS (1)
  1. ONBREZ [Suspect]
     Active Substance: INDACATEROL
     Indication: EMPHYSEMA
     Dosage: 300 UG, UNK
     Route: 065
     Dates: start: 2011

REACTIONS (2)
  - Septic shock [Fatal]
  - Sepsis [Fatal]
